FAERS Safety Report 25956440 (Version 1)
Quarter: 2025Q4

REPORT INFORMATION
  Report Type: Spontaneous
  Country: GB (occurrence: GB)
  Receive Date: 20251024
  Receipt Date: 20251024
  Transmission Date: 20260118
  Serious: Yes (Other)
  Sender: MYLAN
  Company Number: GB-MHRA-TPP11607990C2182674YC1760181721910

PATIENT
  Age: 75 Year
  Sex: Male
  Weight: 108 kg

DRUGS (56)
  1. ATORVASTATIN [Suspect]
     Active Substance: ATORVASTATIN
     Indication: Product used for unknown indication
     Dosage: 1 DOSAGE FORM, QD (TAKE ONE DAILY)
     Dates: start: 20241008, end: 20251011
  2. ATORVASTATIN [Suspect]
     Active Substance: ATORVASTATIN
     Dosage: 1 DOSAGE FORM, QD (TAKE ONE DAILY)
     Route: 065
     Dates: start: 20241008, end: 20251011
  3. ATORVASTATIN [Suspect]
     Active Substance: ATORVASTATIN
     Dosage: 1 DOSAGE FORM, QD (TAKE ONE DAILY)
     Route: 065
     Dates: start: 20241008, end: 20251011
  4. ATORVASTATIN [Suspect]
     Active Substance: ATORVASTATIN
     Dosage: 1 DOSAGE FORM, QD (TAKE ONE DAILY)
     Dates: start: 20241008, end: 20251011
  5. AMLODIPINE [Concomitant]
     Active Substance: AMLODIPINE BESYLATE
     Indication: Ill-defined disorder
     Dosage: 1 DOSAGE FORM, QD (TAKE ONE DAILY)
     Dates: start: 20241008
  6. AMLODIPINE [Concomitant]
     Active Substance: AMLODIPINE BESYLATE
     Dosage: 1 DOSAGE FORM, QD (TAKE ONE DAILY)
     Route: 065
     Dates: start: 20241008
  7. AMLODIPINE [Concomitant]
     Active Substance: AMLODIPINE BESYLATE
     Dosage: 1 DOSAGE FORM, QD (TAKE ONE DAILY)
     Route: 065
     Dates: start: 20241008
  8. AMLODIPINE [Concomitant]
     Active Substance: AMLODIPINE BESYLATE
     Dosage: 1 DOSAGE FORM, QD (TAKE ONE DAILY)
     Dates: start: 20241008
  9. AVANAFIL [Concomitant]
     Active Substance: AVANAFIL
     Indication: Ill-defined disorder
     Dosage: UNK (USE AS DIRECTED)
  10. AVANAFIL [Concomitant]
     Active Substance: AVANAFIL
     Dosage: UNK (USE AS DIRECTED)
     Route: 065
  11. AVANAFIL [Concomitant]
     Active Substance: AVANAFIL
     Dosage: UNK (USE AS DIRECTED)
     Route: 065
  12. AVANAFIL [Concomitant]
     Active Substance: AVANAFIL
     Dosage: UNK (USE AS DIRECTED)
  13. CLOPIDOGREL [Concomitant]
     Active Substance: CLOPIDOGREL BISULFATE
     Indication: Ill-defined disorder
     Dosage: 1 DOSAGE FORM, QD (TAKE ONE ONCE DAILY)
     Dates: start: 20241008
  14. CLOPIDOGREL [Concomitant]
     Active Substance: CLOPIDOGREL BISULFATE
     Dosage: 1 DOSAGE FORM, QD (TAKE ONE ONCE DAILY)
     Route: 065
     Dates: start: 20241008
  15. CLOPIDOGREL [Concomitant]
     Active Substance: CLOPIDOGREL BISULFATE
     Dosage: 1 DOSAGE FORM, QD (TAKE ONE ONCE DAILY)
     Route: 065
     Dates: start: 20241008
  16. CLOPIDOGREL [Concomitant]
     Active Substance: CLOPIDOGREL BISULFATE
     Dosage: 1 DOSAGE FORM, QD (TAKE ONE ONCE DAILY)
     Dates: start: 20241008
  17. IBUPROFEN [Concomitant]
     Active Substance: IBUPROFEN
     Indication: Ill-defined disorder
     Dosage: UNK, TID (APPLY TO THE JOINTS THREE TIMES DAILY FOR PAIN)
     Dates: start: 20241008
  18. IBUPROFEN [Concomitant]
     Active Substance: IBUPROFEN
     Dosage: UNK, TID (APPLY TO THE JOINTS THREE TIMES DAILY FOR PAIN)
     Route: 065
     Dates: start: 20241008
  19. IBUPROFEN [Concomitant]
     Active Substance: IBUPROFEN
     Dosage: UNK, TID (APPLY TO THE JOINTS THREE TIMES DAILY FOR PAIN)
     Route: 065
     Dates: start: 20241008
  20. IBUPROFEN [Concomitant]
     Active Substance: IBUPROFEN
     Dosage: UNK, TID (APPLY TO THE JOINTS THREE TIMES DAILY FOR PAIN)
     Dates: start: 20241008
  21. IPRATROPIUM BROMIDE [Concomitant]
     Active Substance: IPRATROPIUM BROMIDE
     Indication: Ill-defined disorder
     Dosage: 4 DOSAGE FORM (TWO PUFFS 2-3 TIMES/DAY TO EACH SIDE)
  22. IPRATROPIUM BROMIDE [Concomitant]
     Active Substance: IPRATROPIUM BROMIDE
     Dosage: 4 DOSAGE FORM (TWO PUFFS 2-3 TIMES/DAY TO EACH SIDE)
     Route: 065
  23. IPRATROPIUM BROMIDE [Concomitant]
     Active Substance: IPRATROPIUM BROMIDE
     Dosage: 4 DOSAGE FORM (TWO PUFFS 2-3 TIMES/DAY TO EACH SIDE)
     Route: 065
  24. IPRATROPIUM BROMIDE [Concomitant]
     Active Substance: IPRATROPIUM BROMIDE
     Dosage: 4 DOSAGE FORM (TWO PUFFS 2-3 TIMES/DAY TO EACH SIDE)
  25. LACTULOSE [Concomitant]
     Active Substance: LACTULOSE
     Indication: Ill-defined disorder
     Dosage: 10 MILLILITER, BID (10ML TWICE A DAY MORNING AND EVENING WHEN NEEDED)
     Dates: start: 20241008
  26. LACTULOSE [Concomitant]
     Active Substance: LACTULOSE
     Dosage: 10 MILLILITER, BID (10ML TWICE A DAY MORNING AND EVENING WHEN NEEDED)
     Route: 065
     Dates: start: 20241008
  27. LACTULOSE [Concomitant]
     Active Substance: LACTULOSE
     Dosage: 10 MILLILITER, BID (10ML TWICE A DAY MORNING AND EVENING WHEN NEEDED)
     Route: 065
     Dates: start: 20241008
  28. LACTULOSE [Concomitant]
     Active Substance: LACTULOSE
     Dosage: 10 MILLILITER, BID (10ML TWICE A DAY MORNING AND EVENING WHEN NEEDED)
     Dates: start: 20241008
  29. LANSOPRAZOLE [Concomitant]
     Active Substance: LANSOPRAZOLE
     Indication: Ill-defined disorder
     Dosage: 1 DOSAGE FORM, QD (TAKE ONE ONCE DAILY)
     Dates: start: 20241008
  30. LANSOPRAZOLE [Concomitant]
     Active Substance: LANSOPRAZOLE
     Dosage: 1 DOSAGE FORM, QD (TAKE ONE ONCE DAILY)
     Route: 065
     Dates: start: 20241008
  31. LANSOPRAZOLE [Concomitant]
     Active Substance: LANSOPRAZOLE
     Dosage: 1 DOSAGE FORM, QD (TAKE ONE ONCE DAILY)
     Route: 065
     Dates: start: 20241008
  32. LANSOPRAZOLE [Concomitant]
     Active Substance: LANSOPRAZOLE
     Dosage: 1 DOSAGE FORM, QD (TAKE ONE ONCE DAILY)
     Dates: start: 20241008
  33. ACETAMINOPHEN [Concomitant]
     Active Substance: ACETAMINOPHEN
     Indication: Ill-defined disorder
     Dosage: 2 DOSAGE FORM, Q6H (TAKE TWO UPTO 4 TIMES/DAY)
     Dates: start: 20241008
  34. ACETAMINOPHEN [Concomitant]
     Active Substance: ACETAMINOPHEN
     Dosage: 2 DOSAGE FORM, Q6H (TAKE TWO UPTO 4 TIMES/DAY)
     Route: 065
     Dates: start: 20241008
  35. ACETAMINOPHEN [Concomitant]
     Active Substance: ACETAMINOPHEN
     Dosage: 2 DOSAGE FORM, Q6H (TAKE TWO UPTO 4 TIMES/DAY)
     Route: 065
     Dates: start: 20241008
  36. ACETAMINOPHEN [Concomitant]
     Active Substance: ACETAMINOPHEN
     Dosage: 2 DOSAGE FORM, Q6H (TAKE TWO UPTO 4 TIMES/DAY)
     Dates: start: 20241008
  37. SOLIFENACIN [Concomitant]
     Active Substance: SOLIFENACIN
     Indication: Ill-defined disorder
     Dosage: 1 DOSAGE FORM, QD (TAKE ONE TABLET ONCE A DAY)
     Dates: start: 20241008
  38. SOLIFENACIN [Concomitant]
     Active Substance: SOLIFENACIN
     Dosage: 1 DOSAGE FORM, QD (TAKE ONE TABLET ONCE A DAY)
     Route: 065
     Dates: start: 20241008
  39. SOLIFENACIN [Concomitant]
     Active Substance: SOLIFENACIN
     Dosage: 1 DOSAGE FORM, QD (TAKE ONE TABLET ONCE A DAY)
     Route: 065
     Dates: start: 20241008
  40. SOLIFENACIN [Concomitant]
     Active Substance: SOLIFENACIN
     Dosage: 1 DOSAGE FORM, QD (TAKE ONE TABLET ONCE A DAY)
     Dates: start: 20241008
  41. TAMSULOSIN HYDROCHLORIDE [Concomitant]
     Active Substance: TAMSULOSIN HYDROCHLORIDE
     Indication: Ill-defined disorder
     Dosage: 1 DOSAGE FORM, QD (TAKE ONE DAILY)
     Dates: start: 20241008
  42. TAMSULOSIN HYDROCHLORIDE [Concomitant]
     Active Substance: TAMSULOSIN HYDROCHLORIDE
     Dosage: 1 DOSAGE FORM, QD (TAKE ONE DAILY)
     Route: 065
     Dates: start: 20241008
  43. TAMSULOSIN HYDROCHLORIDE [Concomitant]
     Active Substance: TAMSULOSIN HYDROCHLORIDE
     Dosage: 1 DOSAGE FORM, QD (TAKE ONE DAILY)
     Route: 065
     Dates: start: 20241008
  44. TAMSULOSIN HYDROCHLORIDE [Concomitant]
     Active Substance: TAMSULOSIN HYDROCHLORIDE
     Dosage: 1 DOSAGE FORM, QD (TAKE ONE DAILY)
     Dates: start: 20241008
  45. TRAMADOL [Concomitant]
     Active Substance: TRAMADOL
     Indication: Ill-defined disorder
     Dosage: UNK, PRN (TAKE 1 OR 2 EVERY 4-6 HRS WHEN REQUIRED FOR PAIN)
  46. TRAMADOL [Concomitant]
     Active Substance: TRAMADOL
     Dosage: UNK, PRN (TAKE 1 OR 2 EVERY 4-6 HRS WHEN REQUIRED FOR PAIN)
     Route: 065
  47. TRAMADOL [Concomitant]
     Active Substance: TRAMADOL
     Dosage: UNK, PRN (TAKE 1 OR 2 EVERY 4-6 HRS WHEN REQUIRED FOR PAIN)
     Route: 065
  48. TRAMADOL [Concomitant]
     Active Substance: TRAMADOL
     Dosage: UNK, PRN (TAKE 1 OR 2 EVERY 4-6 HRS WHEN REQUIRED FOR PAIN)
  49. BECLOMETHASONE DIPROPIONATE\FORMOTEROL FUMARATE [Concomitant]
     Active Substance: BECLOMETHASONE DIPROPIONATE\FORMOTEROL FUMARATE
     Indication: Ill-defined disorder
     Dosage: 2 DOSAGE FORM, BID (INHALE TWO PUFFS TWICE A DAY, PLEASE RETURN YOU)
     Dates: start: 20241125
  50. BECLOMETHASONE DIPROPIONATE\FORMOTEROL FUMARATE [Concomitant]
     Active Substance: BECLOMETHASONE DIPROPIONATE\FORMOTEROL FUMARATE
     Dosage: 2 DOSAGE FORM, BID (INHALE TWO PUFFS TWICE A DAY, PLEASE RETURN YOU)
     Route: 055
     Dates: start: 20241125
  51. BECLOMETHASONE DIPROPIONATE\FORMOTEROL FUMARATE [Concomitant]
     Active Substance: BECLOMETHASONE DIPROPIONATE\FORMOTEROL FUMARATE
     Dosage: 2 DOSAGE FORM, BID (INHALE TWO PUFFS TWICE A DAY, PLEASE RETURN YOU)
     Route: 055
     Dates: start: 20241125
  52. BECLOMETHASONE DIPROPIONATE\FORMOTEROL FUMARATE [Concomitant]
     Active Substance: BECLOMETHASONE DIPROPIONATE\FORMOTEROL FUMARATE
     Dosage: 2 DOSAGE FORM, BID (INHALE TWO PUFFS TWICE A DAY, PLEASE RETURN YOU)
     Dates: start: 20241125
  53. ALBUTEROL [Concomitant]
     Active Substance: ALBUTEROL
     Indication: Ill-defined disorder
     Dosage: 2 DOSAGE FORM, PRN (INHALE 2 DOSES AS NEEDED, LOWER CARBON FOOTPRINT)
     Dates: start: 20241125, end: 20251009
  54. ALBUTEROL [Concomitant]
     Active Substance: ALBUTEROL
     Dosage: 2 DOSAGE FORM, PRN (INHALE 2 DOSES AS NEEDED, LOWER CARBON FOOTPRINT)
     Route: 055
     Dates: start: 20241125, end: 20251009
  55. ALBUTEROL [Concomitant]
     Active Substance: ALBUTEROL
     Dosage: 2 DOSAGE FORM, PRN (INHALE 2 DOSES AS NEEDED, LOWER CARBON FOOTPRINT)
     Route: 055
     Dates: start: 20241125, end: 20251009
  56. ALBUTEROL [Concomitant]
     Active Substance: ALBUTEROL
     Dosage: 2 DOSAGE FORM, PRN (INHALE 2 DOSES AS NEEDED, LOWER CARBON FOOTPRINT)
     Dates: start: 20241125, end: 20251009

REACTIONS (1)
  - Paraesthesia [Recovered/Resolved]
